FAERS Safety Report 11246990 (Version 2)
Quarter: 2015Q3

REPORT INFORMATION
  Report Type: Spontaneous
  Country: FR (occurrence: FR)
  Receive Date: 20150708
  Receipt Date: 20150824
  Transmission Date: 20151125
  Serious: Yes (Hospitalization, Other)
  Sender: FDA-Public Use
  Company Number: FR-BAXALTA-2015BLT000163

PATIENT
  Age: 16 Year
  Sex: Male

DRUGS (4)
  1. ADVATE [Suspect]
     Active Substance: ANTIHEMOPHILIC FACTOR, HUMAN RECOMBINANT
     Indication: TOOTH EXTRACTION
     Dosage: 2000 IU, UNK
     Route: 065
     Dates: start: 200803
  2. ADVATE [Suspect]
     Active Substance: ANTIHEMOPHILIC FACTOR, HUMAN RECOMBINANT
     Indication: HAEMARTHROSIS
     Dosage: 2500 IU, UNK
     Route: 065
     Dates: start: 201106
  3. ADVATE [Suspect]
     Active Substance: ANTIHEMOPHILIC FACTOR, HUMAN RECOMBINANT
     Dosage: 2000 IU, UNK
     Route: 065
     Dates: start: 201410
  4. ADVATE [Suspect]
     Active Substance: ANTIHEMOPHILIC FACTOR, HUMAN RECOMBINANT
     Indication: FACTOR VIII DEFICIENCY
     Dosage: UNK
     Route: 042
     Dates: start: 20080305, end: 20141205

REACTIONS (3)
  - Haemarthrosis [Unknown]
  - Factor VIII inhibition [Not Recovered/Not Resolved]
  - Fall [Unknown]

NARRATIVE: CASE EVENT DATE: 201106
